FAERS Safety Report 5061068-5 (Version None)
Quarter: 2006Q3

REPORT INFORMATION
  Report Type: 
  Country: None (occurrence: None)
  Receive Date: 20060725
  Receipt Date: 20060714
  Transmission Date: 20061208
  Serious: Yes (Other)
  Sender: FDA-Public Use
  Company Number: US-ROCHE-455849

PATIENT
  Age: 65 Year
  Sex: Female

DRUGS (2)
  1. XELODA [Suspect]
     Indication: BREAST CANCER
     Route: 048
     Dates: start: 20020615, end: 20020809
  2. TAXOTERE [Suspect]
     Indication: BREAST CANCER
     Route: 065
     Dates: start: 20020615, end: 20020806

REACTIONS (2)
  - ANAPHYLACTIC REACTION [None]
  - CHEST DISCOMFORT [None]
